FAERS Safety Report 9114510 (Version 1)
Quarter: 2013Q1

REPORT INFORMATION
  Report Type: Spontaneous
  Country: US (occurrence: None)
  Receive Date: 20130220
  Receipt Date: 20130220
  Transmission Date: 20140127
  Serious: No
  Sender: FDA-Public Use
  Company Number: None

PATIENT
  Age: 34 Year
  Sex: Male
  Weight: 50 kg

DRUGS (1)
  1. METRONIDAZOLE [Suspect]
     Indication: COLITIS
     Dosage: 500  MG   Q8H   IV?4 DOSES   02/09/2013  -  02/10/2013
     Route: 042
     Dates: start: 20130209, end: 20130210

REACTIONS (1)
  - Vision blurred [None]
